FAERS Safety Report 23122141 (Version 3)
Quarter: 2023Q4

REPORT INFORMATION
  Report Type: Spontaneous
  Country: FR (occurrence: FR)
  Receive Date: 20231030
  Receipt Date: 20231117
  Transmission Date: 20240109
  Serious: Yes (Life-Threatening, Disabling, Other)
  Sender: FDA-Public Use
  Company Number: FR-SA-SAC20231026001591

PATIENT
  Age: 54 Year
  Sex: Male

DRUGS (1)
  1. DUPIXENT [Suspect]
     Active Substance: DUPILUMAB
     Indication: Nasal polyps
     Dosage: 300 MG, QOW
     Route: 058
     Dates: start: 20221001

REACTIONS (4)
  - Squamous cell carcinoma [Recovering/Resolving]
  - Loss of personal independence in daily activities [Recovering/Resolving]
  - Lymphadenopathy [Not Recovered/Not Resolved]
  - Tooth avulsion [Unknown]

NARRATIVE: CASE EVENT DATE: 20221101
